FAERS Safety Report 9176562 (Version 2)
Quarter: 2013Q2

REPORT INFORMATION
  Report Type: Spontaneous
  Country: JP (occurrence: None)
  Receive Date: 20130319
  Receipt Date: 20130404
  Transmission Date: 20140414
  Serious: No
  Sender: FDA-Public Use
  Company Number: TCI2013A01334

PATIENT
  Sex: 0

DRUGS (1)
  1. ACTOS [Suspect]
     Route: 048

REACTIONS (1)
  - Pulmonary alveolar haemorrhage [None]
